FAERS Safety Report 12103966 (Version 1)
Quarter: 2016Q1

REPORT INFORMATION
  Report Type: Spontaneous
  Country: US (occurrence: US)
  Receive Date: 20160223
  Receipt Date: 20160223
  Transmission Date: 20160526
  Serious: No
  Sender: FDA-Public Use
  Company Number: US-TEVA-551620USA

PATIENT
  Sex: Female

DRUGS (2)
  1. BUSPIRONE [Suspect]
     Active Substance: BUSPIRONE HYDROCHLORIDE
     Dates: end: 20150321
  2. BUSPIRONE [Suspect]
     Active Substance: BUSPIRONE HYDROCHLORIDE
     Dates: start: 20150322

REACTIONS (3)
  - Drug withdrawal headache [Recovering/Resolving]
  - Drug dispensing error [Unknown]
  - Product substitution issue [Unknown]

NARRATIVE: CASE EVENT DATE: 20150324
